FAERS Safety Report 8967756 (Version 1)
Quarter: 2012Q4

REPORT INFORMATION
  Report Type: Spontaneous
  Country: GB (occurrence: None)
  Receive Date: 20121210
  Receipt Date: 20121210
  Transmission Date: 20130627
  Serious: Yes (Other)
  Sender: FDA-Public Use
  Company Number: PI-08459

PATIENT
  Sex: Female

DRUGS (2)
  1. CHLORAPREP WITH TINT [Suspect]
     Indication: PREOPERATIVE CARE
     Route: 061
     Dates: start: 20121105
  2. CHLORAPREP WITH TINT [Suspect]
     Indication: THERAPEUTIC SKIN CARE TOPICAL
     Route: 061
     Dates: start: 20121105

REACTIONS (1)
  - Anaphylactic reaction [None]
